FAERS Safety Report 7909166-X (Version None)
Quarter: 2011Q4

REPORT INFORMATION
  Report Type: 
  Country: None (occurrence: None)
  Receive Date: 20111111
  Receipt Date: 20110422
  Transmission Date: 20120403
  Serious: No
  Sender: FDA-Public Use
  Company Number: US-GLAXOSMITHKLINE-A0924217A

PATIENT
  Age: 64 Year
  Sex: Female

DRUGS (8)
  1. ACIPHEX [Concomitant]
  2. BENICAR [Concomitant]
  3. FLUOXETINE HCL [Concomitant]
  4. LANTUS [Concomitant]
  5. APIDRA [Concomitant]
  6. METFORMIN HCL [Concomitant]
  7. COREG [Suspect]
     Indication: HYPERTENSION
     Dosage: 12.5MG TWICE PER DAY
     Route: 048
     Dates: start: 20090101
  8. CRESTOR [Concomitant]

REACTIONS (4)
  - BRADYCARDIA [None]
  - CHEST DISCOMFORT [None]
  - CARDIAC FLUTTER [None]
  - MUSCULOSKELETAL PAIN [None]
